FAERS Safety Report 11873546 (Version 2)
Quarter: 2016Q1

REPORT INFORMATION
  Report Type: Spontaneous
  Country: FR (occurrence: FR)
  Receive Date: 20151228
  Receipt Date: 20160121
  Transmission Date: 20160526
  Serious: No
  Sender: FDA-Public Use
  Company Number: FR-009507513-1512FRA012711

PATIENT
  Sex: Female

DRUGS (2)
  1. DIPROSONE [Suspect]
     Active Substance: BETAMETHASONE DIPROPIONATE
     Indication: PSORIASIS
  2. FLUIDABAK [Suspect]
     Active Substance: POVIDONE
     Indication: DRY EYE

REACTIONS (5)
  - Ocular hyperaemia [Not Recovered/Not Resolved]
  - Vision blurred [Unknown]
  - Drug administration error [Unknown]
  - Eye irritation [Unknown]
  - Product name confusion [Unknown]
